FAERS Safety Report 4988978-9 (Version None)
Quarter: 2006Q2

REPORT INFORMATION
  Report Type: 
  Country: None (occurrence: None)
  Receive Date: 20060425
  Receipt Date: 20060413
  Transmission Date: 20061013
  Serious: Yes (Other)
  Sender: FDA-Public Use
  Company Number: 2006-051

PATIENT
  Age: 22 Year
  Sex: Female

DRUGS (10)
  1. AZITHROMYCIN [Suspect]
     Indication: GYNAECOLOGICAL CHLAMYDIA INFECTION
     Dosage: 500MG IV
     Route: 042
     Dates: start: 20060320, end: 20060322
  2. AZITHROMYCIN [Suspect]
     Indication: MYCOPLASMA INFECTION
     Dosage: 500MG IV
     Route: 042
     Dates: start: 20060320, end: 20060322
  3. AZITHROMYCIN [Suspect]
     Indication: SALPINGO-OOPHORITIS
     Dosage: 500MG IV
     Route: 042
     Dates: start: 20060320, end: 20060322
  4. AZITHROMYCIN [Suspect]
     Indication: UREAPLASMA INFECTION
     Dosage: 500MG IV
     Route: 042
     Dates: start: 20060320, end: 20060322
  5. AZITHROMYCIN [Suspect]
     Indication: UROGENITAL TRICHOMONIASIS
     Dosage: 500MG IV
     Route: 042
     Dates: start: 20060320, end: 20060322
  6. TIBERAL (ORNIDAZOLE) [Suspect]
     Indication: GYNAECOLOGICAL CHLAMYDIA INFECTION
     Dosage: 500MG B.I.D.
     Dates: start: 20060317, end: 20060322
  7. TIBERAL (ORNIDAZOLE) [Suspect]
     Indication: MYCOPLASMA INFECTION
     Dosage: 500MG B.I.D.
     Dates: start: 20060317, end: 20060322
  8. TIBERAL (ORNIDAZOLE) [Suspect]
     Indication: SALPINGO-OOPHORITIS
     Dosage: 500MG B.I.D.
     Dates: start: 20060317, end: 20060322
  9. TIBERAL (ORNIDAZOLE) [Suspect]
     Indication: UREAPLASMA INFECTION
     Dosage: 500MG B.I.D.
     Dates: start: 20060317, end: 20060322
  10. TIBERAL (ORNIDAZOLE) [Suspect]
     Indication: UROGENITAL TRICHOMONIASIS
     Dosage: 500MG B.I.D.
     Dates: start: 20060317, end: 20060322

REACTIONS (9)
  - ASTHENIA [None]
  - CHILLS [None]
  - DIZZINESS [None]
  - DRUG INTERACTION [None]
  - HYPOTENSION [None]
  - MYCOPLASMA INFECTION [None]
  - PALLOR [None]
  - PERIPHERAL COLDNESS [None]
  - UREAPLASMA INFECTION [None]
